FAERS Safety Report 6736339-4 (Version None)
Quarter: 2010Q2

REPORT INFORMATION
  Report Type: 
  Country: None (occurrence: None)
  Receive Date: 20100521
  Receipt Date: 20100420
  Transmission Date: 20101027
  Serious: No
  Sender: FDA-Public Use
  Company Number: PR-BAYER-201016060NA

PATIENT
  Age: 36 Year
  Sex: Female

DRUGS (1)
  1. ULTRAVIST 300 [Suspect]
     Indication: DRUG USE FOR UNKNOWN INDICATION
     Dosage: DOSE '75MG'
     Route: 042
     Dates: start: 20100223, end: 20100223

REACTIONS (2)
  - PRURITUS [None]
  - URTICARIA [None]
